FAERS Safety Report 5294333-7 (Version None)
Quarter: 2007Q2

REPORT INFORMATION
  Report Type: 
  Country: None (occurrence: None)
  Receive Date: 20070412
  Receipt Date: 20070405
  Transmission Date: 20071010
  Serious: Yes (Life-Threatening, Other)
  Sender: FDA-Public Use
  Company Number: BE-JNJFOC-20070304001

PATIENT
  Age: 29 Year
  Sex: Female

DRUGS (6)
  1. RISPERDAL CONSTA [Suspect]
     Route: 030
  2. RISPERDAL CONSTA [Suspect]
     Indication: DRUG USE FOR UNKNOWN INDICATION
     Route: 030
  3. RISPERDAL [Suspect]
     Indication: DRUG USE FOR UNKNOWN INDICATION
     Route: 048
  4. XANAX [Concomitant]
     Indication: ANXIETY
     Route: 048
  5. TRAZOLAM [Concomitant]
     Indication: SLEEP DISORDER
     Route: 048
  6. MEDROL [Concomitant]
     Indication: DRUG HYPERSENSITIVITY
     Route: 048

REACTIONS (4)
  - ATRIOVENTRICULAR BLOCK FIRST DEGREE [None]
  - ATRIOVENTRICULAR BLOCK SECOND DEGREE [None]
  - BRADYCARDIA [None]
  - ELECTROCARDIOGRAM QT INTERVAL [None]
